FAERS Safety Report 21278928 (Version 1)
Quarter: 2022Q3

REPORT INFORMATION
  Report Type: Spontaneous
  Country: DE (occurrence: DE)
  Receive Date: 20220901
  Receipt Date: 20220901
  Transmission Date: 20221026
  Serious: Yes (Other)
  Sender: FDA-Public Use
  Company Number: DE-ALKEM LABORATORIES LIMITED-DE-ALKEM-2022-08844

PATIENT
  Age: 68 Year
  Sex: Female

DRUGS (3)
  1. PREGABALIN [Suspect]
     Active Substance: PREGABALIN
     Indication: Radiculopathy
     Dosage: UNK; PREGABAHEXAL 25 MG HARDCAPSULE
     Route: 065
     Dates: start: 202207
  2. MIRABEGRON [Concomitant]
     Active Substance: MIRABEGRON
     Indication: Bladder irritation
     Dosage: UNK
     Route: 065
  3. MIRABEGRON [Concomitant]
     Active Substance: MIRABEGRON
     Indication: Uterine polyp

REACTIONS (2)
  - Corneal dystrophy [Unknown]
  - Visual impairment [Unknown]

NARRATIVE: CASE EVENT DATE: 20220101
